FAERS Safety Report 4626740-7 (Version None)
Quarter: 2005Q2

REPORT INFORMATION
  Report Type: 
  Country: None (occurrence: None)
  Receive Date: 20050405
  Receipt Date: 20050330
  Transmission Date: 20051028
  Serious: Yes (Hospitalization)
  Sender: FDA-Public Use
  Company Number: 200512563US

PATIENT
  Sex: 0

DRUGS (1)
  1. LANTUS [Suspect]
     Dosage: DOSE: NOT PROVIDED

REACTIONS (8)
  - DIARRHOEA [None]
  - DYSPNOEA [None]
  - GASTROENTERITIS VIRAL [None]
  - HEPATIC ENZYME INCREASED [None]
  - KETOACIDOSIS [None]
  - LOSS OF CONSCIOUSNESS [None]
  - MALAISE [None]
  - VOMITING [None]
